FAERS Safety Report 5979501-0 (Version None)
Quarter: 2008Q4

REPORT INFORMATION
  Report Type: 
  Country: None (occurrence: None)
  Receive Date: 20081204
  Receipt Date: 20081201
  Transmission Date: 20090506
  Serious: Yes (Death, Other)
  Sender: FDA-Public Use
  Company Number: IT-ROXANE LABORATORIES, INC.-2008-RO-00305RO

PATIENT
  Age: 27 Year
  Sex: Male

DRUGS (1)
  1. METHOTREXATE [Suspect]
     Indication: LYMPHOMA
     Route: 042

REACTIONS (3)
  - DISEASE PROGRESSION [None]
  - ENCEPHALOPATHY [None]
  - QUADRIPARESIS [None]
